FAERS Safety Report 13167875 (Version 1)
Quarter: 2017Q1

REPORT INFORMATION
  Report Type: Spontaneous
  Country: DK (occurrence: DK)
  Receive Date: 20170131
  Receipt Date: 20170131
  Transmission Date: 20170428
  Serious: Yes (Hospitalization, Other)
  Sender: FDA-Public Use
  Company Number: DK-PFIZER INC-2016520595

PATIENT
  Age: 66 Year
  Sex: Female

DRUGS (12)
  1. ATORVASTATIN CALCIUM. [Suspect]
     Active Substance: ATORVASTATIN CALCIUM
     Indication: THROMBOSIS
     Dosage: UNK
  2. ATORVASTATIN [Suspect]
     Active Substance: ATORVASTATIN
     Indication: THROMBOSIS
  3. ATORVASTATIN KRKA [Concomitant]
     Active Substance: ATORVASTATIN
     Dosage: UNK
  4. ATORVASTATIN [Suspect]
     Active Substance: ATORVASTATIN
     Indication: BLOOD CHOLESTEROL
     Dosage: 10 MG, 1X/DAY
     Dates: start: 20160727, end: 20160930
  5. FOLIMET [Concomitant]
     Dosage: 5 MG, UNK
  6. CODEINE [Concomitant]
     Active Substance: CODEINE
     Dosage: 25 MG, UNK
  7. ATORVASTATIN CALCIUM. [Suspect]
     Active Substance: ATORVASTATIN CALCIUM
     Indication: BLOOD CHOLESTEROL
  8. KININ /00046701/ [Concomitant]
     Dosage: 100 MG, UNK
  9. PAMOL [Concomitant]
     Active Substance: ACETAMINOPHEN
     Dosage: 500 MG, UNK
  10. IMODIUM [Concomitant]
     Active Substance: LOPERAMIDE HYDROCHLORIDE
     Dosage: 2 MG, UNK
  11. LAMOTRIGIN [Concomitant]
     Active Substance: LAMOTRIGINE
     Dosage: 100 MG, UNK
  12. MARCOUMAR [Concomitant]
     Active Substance: PHENPROCOUMON
     Dosage: 3 MG, UNK

REACTIONS (5)
  - Epistaxis [Unknown]
  - Dysstasia [Unknown]
  - Discomfort [Unknown]
  - Pain in extremity [Unknown]
  - Muscle spasms [Unknown]
